FAERS Safety Report 26131909 (Version 2)
Quarter: 2025Q4

REPORT INFORMATION
  Report Type: Spontaneous
  Country: CN (occurrence: CN)
  Receive Date: 20251208
  Receipt Date: 20251214
  Transmission Date: 20260117
  Serious: Yes (Other)
  Sender: PFIZER
  Company Number: CN-PFIZER INC-PV202500142531

PATIENT
  Age: 40 Year
  Sex: Female
  Weight: 45 kg

DRUGS (2)
  1. PACLITAXEL [Suspect]
     Active Substance: PACLITAXEL
     Indication: Ovarian cancer
     Dosage: 210.000 MG, EVERY 3 WEEKS
     Route: 041
     Dates: start: 20251010, end: 20251111
  2. CARBOPLATIN [Suspect]
     Active Substance: CARBOPLATIN
     Indication: Ovarian cancer
     Dosage: 60.000 MG, EVERY 3 WEEKS
     Route: 041
     Dates: start: 20251010, end: 20251111

REACTIONS (1)
  - Liver injury [Recovering/Resolving]

NARRATIVE: CASE EVENT DATE: 20251029
